FAERS Safety Report 17967119 (Version 1)
Quarter: 2020Q2

REPORT INFORMATION
  Report Type: Spontaneous
  Country: US (occurrence: US)
  Receive Date: 20200630
  Receipt Date: 20200630
  Transmission Date: 20200714
  Serious: No
  Sender: FDA-Public Use
  Company Number: None

PATIENT
  Age: 64 Year
  Sex: Female

DRUGS (1)
  1. SUTENT [Suspect]
     Active Substance: SUNITINIB MALATE
     Indication: NEUROENDOCRINE CARCINOMA
     Route: 048
     Dates: start: 202006, end: 20200630

REACTIONS (6)
  - Gingival swelling [None]
  - Erythema [None]
  - Therapy change [None]
  - Skin disorder [None]
  - Oral mucosal blistering [None]
  - Throat irritation [None]

NARRATIVE: CASE EVENT DATE: 20200630
